FAERS Safety Report 9784320 (Version 1)
Quarter: 2013Q4

REPORT INFORMATION
  Report Type: Spontaneous
  Country: US (occurrence: US)
  Receive Date: 20131226
  Receipt Date: 20131226
  Transmission Date: 20140711
  Serious: No
  Sender: FDA-Public Use
  Company Number: US-BIOGENIDEC-2013BI122676

PATIENT
  Sex: Female

DRUGS (12)
  1. TECFIDERA [Suspect]
     Indication: MULTIPLE SCLEROSIS
     Route: 048
     Dates: start: 20130603
  2. ALENDRONATE SODIUM [Concomitant]
  3. AMLODIPINE BESYLATE [Concomitant]
  4. BUTALBITAL-APAP-CAFFEINE [Concomitant]
  5. IBUPROFEN [Concomitant]
  6. JANUMET [Concomitant]
  7. KLONOPIN [Concomitant]
  8. METHOCARBAMOL [Concomitant]
  9. OXYCODONE HCL [Concomitant]
  10. PEPCID [Concomitant]
  11. PREMPRO [Concomitant]
  12. ROZEREM [Concomitant]

REACTIONS (3)
  - Asthenia [Unknown]
  - Neuropathy peripheral [Unknown]
  - Pain in extremity [Unknown]
